FAERS Safety Report 8849941 (Version 3)
Quarter: 2012Q4

REPORT INFORMATION
  Report Type: Report from Study
  Country: IT (occurrence: IT)
  Receive Date: 20121019
  Receipt Date: 20121227
  Transmission Date: 20130627
  Serious: Yes (Hospitalization)
  Sender: FDA-Public Use
  Company Number: IT-BAXTER-2012BAX008946

PATIENT
  Age: 6 Year
  Sex: Male
  Weight: 16.6 kg

DRUGS (11)
  1. HOLOXAN [Suspect]
     Indication: MALIGNANT NEOPLASM NOS
     Route: 042
     Dates: start: 20120314
  2. HOLOXAN [Suspect]
     Route: 042
     Dates: start: 20120521
  3. HOLOXAN [Suspect]
     Route: 042
     Dates: start: 20120908
  4. VINCRISTINE [Suspect]
     Indication: MALIGNANT NEOPLASM NOS
     Route: 042
     Dates: start: 20120314
  5. VINCRISTINE [Suspect]
     Route: 042
     Dates: start: 20120520
  6. VINCRISTINE [Suspect]
     Route: 042
     Dates: start: 20120907
  7. ACTINOMYCIN D [Suspect]
     Indication: MALIGNANT NEOPLASM NOS
     Route: 042
     Dates: start: 20120314
  8. ACTINOMYCIN D [Suspect]
     Route: 042
     Dates: start: 20120520
  9. ACTINOMYCIN D [Suspect]
     Route: 042
     Dates: start: 20120907
  10. DOXORUBICIN [Suspect]
     Indication: MALIGNANT NEOPLASM NOS
     Route: 042
     Dates: start: 20120314
  11. DOXORUBICIN [Suspect]
     Route: 042
     Dates: start: 20120521

REACTIONS (5)
  - Febrile neutropenia [Recovered/Resolved]
  - Febrile neutropenia [Recovered/Resolved]
  - Febrile neutropenia [Recovered/Resolved]
  - Herpes zoster [Recovered/Resolved]
  - Febrile neutropenia [Recovered/Resolved]
